FAERS Safety Report 5021501-1 (Version None)
Quarter: 2006Q2

REPORT INFORMATION
  Report Type: 
  Country: None (occurrence: None)
  Receive Date: 20060601
  Receipt Date: 20060309
  Transmission Date: 20061013
  Serious: No
  Sender: FDA-Public Use
  Company Number: 2006PV009951

PATIENT
  Age: 61 Year
  Sex: Male
  Weight: 145.151 kg

DRUGS (5)
  1. BYETTA [Suspect]
     Indication: DIABETES MELLITUS NON-INSULIN-DEPENDENT
     Dosage: 5 MCG;BID;SC
     Route: 058
     Dates: start: 20060213, end: 20060305
  2. METFORMIN HCL [Concomitant]
  3. NOVOLIN N [Concomitant]
  4. NOVOLIN R [Concomitant]
  5. NOVOLIN [Concomitant]

REACTIONS (5)
  - BLOOD GLUCOSE INCREASED [None]
  - DIARRHOEA [None]
  - DRUG INEFFECTIVE [None]
  - INJECTION SITE PAIN [None]
  - WEIGHT DECREASED [None]
